FAERS Safety Report 5028336-4 (Version None)
Quarter: 2006Q2

REPORT INFORMATION
  Report Type: 
  Country: None (occurrence: None)
  Receive Date: 20060503
  Receipt Date: 20060213
  Transmission Date: 20061013
  Serious: No
  Sender: FDA-Public Use
  Company Number: FACT0600080

PATIENT
  Age: 65 Year
  Sex: Female
  Weight: 113.4 kg

DRUGS (10)
  1. FACTIVE [Suspect]
     Indication: RESPIRATORY TRACT INFECTION BACTERIAL
     Dosage: 320 MG, QD, ORAL
     Route: 048
     Dates: start: 20060202, end: 20060203
  2. VITAMIN E [Concomitant]
  3. COD-LIVER OIL (COD-LIVER OIL) [Concomitant]
  4. ESTROPIPATE [Concomitant]
  5. SINGULAIR [Concomitant]
  6. VYTORIN [Concomitant]
  7. DYNACIRC [Concomitant]
  8. FORTAMINES (FOLIC ACID, VITAMINS NOS) [Concomitant]
  9. EFFEXOR XR [Concomitant]
  10. POTASSIUM CHLORIDE [Concomitant]

REACTIONS (3)
  - ABDOMINAL PAIN UPPER [None]
  - DIARRHOEA [None]
  - VOMITING [None]
